FAERS Safety Report 20323361 (Version 1)
Quarter: 2022Q1

REPORT INFORMATION
  Report Type: Spontaneous
  Country: US (occurrence: None)
  Receive Date: 20220111
  Receipt Date: 20220111
  Transmission Date: 20220423
  Serious: No
  Sender: FDA-Public Use
  Company Number: None

PATIENT
  Age: 71 Year
  Sex: Male
  Weight: 100.70 kg

DRUGS (1)
  1. ETODOLAC [Suspect]
     Active Substance: ETODOLAC
     Dosage: FREQUENCY : TWICE A DAY;?
     Route: 048
     Dates: start: 20210205, end: 20211007

REACTIONS (2)
  - Urticaria [None]
  - Rash pruritic [None]

NARRATIVE: CASE EVENT DATE: 20211007
